FAERS Safety Report 6177195-5 (Version None)
Quarter: 2009Q2

REPORT INFORMATION
  Report Type: 
  Country: None (occurrence: None)
  Receive Date: 20090504
  Receipt Date: 20090430
  Transmission Date: 20091009
  Serious: No
  Sender: FDA-Public Use
  Company Number: US-B.I. PHARMACEUTICALS,INC./RIDGEFIELD-2009-BP-04681BP

PATIENT
  Sex: Female

DRUGS (2)
  1. MICARDIS HCT [Suspect]
     Indication: HYPERTENSION
     Route: 048
     Dates: start: 20050101
  2. MOTRIN [Concomitant]
     Indication: ARTHRITIS

REACTIONS (7)
  - DIZZINESS [None]
  - EAR DISCOMFORT [None]
  - ENAMEL ANOMALY [None]
  - PHOTOSENSITIVITY REACTION [None]
  - RHINITIS [None]
  - SKIN BURNING SENSATION [None]
  - TINNITUS [None]
